FAERS Safety Report 13544972 (Version 2)
Quarter: 2017Q2

REPORT INFORMATION
  Report Type: Spontaneous
  Country: US (occurrence: US)
  Receive Date: 20170515
  Receipt Date: 20170602
  Transmission Date: 20170830
  Serious: No
  Sender: FDA-Public Use
  Company Number: US-GLAXOSMITHKLINE-US2017GSK069739

PATIENT
  Age: 54 Year
  Sex: Male

DRUGS (1)
  1. TRANSDERM SCOP [Suspect]
     Active Substance: SCOPOLAMINE
     Indication: ILL-DEFINED DISORDER
     Dosage: UNK
     Dates: start: 201702

REACTIONS (6)
  - Product quality issue [Unknown]
  - Application site exfoliation [Unknown]
  - Off label use [Unknown]
  - Skin burning sensation [Unknown]
  - Product use in unapproved indication [Unknown]
  - Application site erythema [Unknown]
